FAERS Safety Report 10178301 (Version 2)
Quarter: 2014Q2

REPORT INFORMATION
  Report Type: Report from Study
  Country: DE (occurrence: DE)
  Receive Date: 20140519
  Receipt Date: 20140519
  Transmission Date: 20141212
  Serious: Yes (Death, Hospitalization)
  Sender: FDA-Public Use
  Company Number: DE-ALEXION-A201101171

PATIENT
  Sex: 0

DRUGS (2)
  1. SOLIRIS [Suspect]
     Indication: HAEMOLYTIC URAEMIC SYNDROME
     Dosage: 300 MG, QW
     Route: 042
     Dates: start: 20110525, end: 201106
  2. SOLIRIS [Suspect]
     Indication: OFF LABEL USE
     Dosage: UNK
     Route: 042
     Dates: start: 201107

REACTIONS (3)
  - Death [Fatal]
  - Haemolytic uraemic syndrome [Unknown]
  - Off label use [Unknown]
